FAERS Safety Report 6788816-8 (Version None)
Quarter: 2010Q2

REPORT INFORMATION
  Report Type: 
  Country: None (occurrence: None)
  Receive Date: 20100623
  Receipt Date: 20081008
  Transmission Date: 20101027
  Serious: No
  Sender: FDA-Public Use
  Company Number: US-PFIZER INC-2008033237

PATIENT
  Sex: Female
  Weight: 61.4 kg

DRUGS (5)
  1. GEODON [Suspect]
     Indication: BIPOLAR DISORDER
     Dates: start: 20070101
  2. WELLBUTRIN [Concomitant]
  3. LAMICTAL [Concomitant]
  4. EFFEXOR [Concomitant]
  5. XANAX [Concomitant]

REACTIONS (11)
  - DISTURBANCE IN ATTENTION [None]
  - DIZZINESS [None]
  - FATIGUE [None]
  - FLAT AFFECT [None]
  - HOT FLUSH [None]
  - HYPERSOMNIA [None]
  - HYPOAESTHESIA [None]
  - INSOMNIA [None]
  - SOMNOLENCE [None]
  - TREMOR [None]
  - WITHDRAWAL SYNDROME [None]
